FAERS Safety Report 8491444-X (Version None)
Quarter: 2012Q3

REPORT INFORMATION
  Report Type: 
  Country: None (occurrence: None)
  Receive Date: 20120706
  Receipt Date: 20120704
  Transmission Date: 20120928
  Serious: Yes (Other)
  Sender: FDA-Public Use
  Company Number: US-BAYER-2012-056237

PATIENT
  Age: 34 Year
  Sex: Female

DRUGS (3)
  1. AMBRISENTAN [Suspect]
     Indication: PULMONARY HYPERTENSION
     Dosage: UNK
     Dates: start: 20070807
  2. CIPROFLOXACIN HCL [Suspect]
     Indication: TOOTH INFECTION
  3. REMODULIN [Concomitant]

REACTIONS (9)
  - CHEST PAIN [None]
  - DIZZINESS [None]
  - WEIGHT INCREASED [None]
  - DIARRHOEA [None]
  - ABDOMINAL DISCOMFORT [None]
  - OEDEMA PERIPHERAL [None]
  - MENORRHAGIA [None]
  - MALAISE [None]
  - TOOTH INFECTION [None]
